FAERS Safety Report 10398485 (Version 3)
Quarter: 2014Q3

REPORT INFORMATION
  Report Type: Spontaneous
  Country: PL (occurrence: PL)
  Receive Date: 20140821
  Receipt Date: 20140912
  Transmission Date: 20150326
  Serious: Yes (Hospitalization, Other)
  Sender: FDA-Public Use
  Company Number: PHHY2014PL103324

PATIENT
  Age: 46 Year
  Sex: Female

DRUGS (5)
  1. PARACETAMOL [Suspect]
     Active Substance: ACETAMINOPHEN
     Indication: INFLUENZA LIKE ILLNESS
     Dosage: 5.5 G, FOR 3 DAYS-MAXIMUM DAILY DOSE OF ACETAMINOPHEN IS 4 GRAMS
  2. FERVEX [Suspect]
     Active Substance: ACETAMINOPHEN\ASCORBIC ACID\PHENIRAMINE MALEATE
     Indication: INFLUENZA LIKE ILLNESS
  3. GARLIC. [Concomitant]
     Active Substance: GARLIC
     Indication: INFLUENZA LIKE ILLNESS
  4. CAPECITABINE [Concomitant]
     Active Substance: CAPECITABINE
     Indication: BREAST CANCER METASTATIC
  5. VINORELBINE [Concomitant]
     Active Substance: VINORELBINE\VINORELBINE TARTRATE
     Indication: BREAST CANCER METASTATIC

REACTIONS (18)
  - Asthenia [Recovering/Resolving]
  - Dyspepsia [Recovering/Resolving]
  - Blood fibrinogen increased [Recovering/Resolving]
  - Thrombocytopenia [Recovering/Resolving]
  - Overdose [Unknown]
  - Hepatotoxicity [Recovering/Resolving]
  - Hyperbilirubinaemia [Recovered/Resolved]
  - Yellow skin [Recovering/Resolving]
  - Liver function test abnormal [Recovering/Resolving]
  - Blood lactate dehydrogenase increased [Recovering/Resolving]
  - Liver injury [Recovering/Resolving]
  - Prothrombin time prolonged [Recovered/Resolved]
  - Scleral discolouration [Recovering/Resolving]
  - Fibrin D dimer increased [Recovering/Resolving]
  - Hepatic steatosis [Unknown]
  - International normalised ratio increased [Recovered/Resolved]
  - Vomiting [Recovering/Resolving]
  - Musculoskeletal chest pain [Recovering/Resolving]
